FAERS Safety Report 18371822 (Version 1)
Quarter: 2020Q4

REPORT INFORMATION
  Report Type: Spontaneous
  Country: FR (occurrence: FR)
  Receive Date: 20201012
  Receipt Date: 20201012
  Transmission Date: 20210114
  Serious: Yes (Hospitalization)
  Sender: FDA-Public Use
  Company Number: FR-JNJFOC-20200953232

PATIENT
  Sex: Female
  Weight: 4 kg

DRUGS (4)
  1. HALDOL [Suspect]
     Active Substance: HALOPERIDOL
     Indication: SCHIZOAFFECTIVE DISORDER
     Route: 064
     Dates: start: 201908, end: 20200523
  2. LEPTICUR [Suspect]
     Active Substance: TROPATEPINE HYDROCHLORIDE
     Indication: SCHIZOAFFECTIVE DISORDER
     Route: 064
     Dates: start: 201908, end: 20200523
  3. HALDOL [Suspect]
     Active Substance: HALOPERIDOL
     Indication: SCHIZOAFFECTIVE DISORDER
     Route: 063
     Dates: start: 20200523, end: 202008
  4. LEPTICUR [Suspect]
     Active Substance: TROPATEPINE HYDROCHLORIDE
     Route: 063
     Dates: start: 20200523, end: 202008

REACTIONS (4)
  - Exposure via breast milk [Unknown]
  - Hypertonia [Recovering/Resolving]
  - Agitation [Recovering/Resolving]
  - Maternal drugs affecting foetus [Recovered/Resolved]

NARRATIVE: CASE EVENT DATE: 201908
